FAERS Safety Report 8817138 (Version 1)
Quarter: 2012Q4

REPORT INFORMATION
  Report Type: Spontaneous
  Country: US (occurrence: None)
  Receive Date: 20121003
  Receipt Date: 20121003
  Transmission Date: 20130627
  Serious: No
  Sender: FDA-Public Use
  Company Number: None

PATIENT
  Age: 78 Year
  Sex: Male
  Weight: 67.7 kg

DRUGS (1)
  1. GEMFIBROZIL [Suspect]
     Dosage: mg, bid,po
     Route: 048

REACTIONS (1)
  - Renal impairment [None]
